FAERS Safety Report 9388953 (Version 4)
Quarter: 2014Q1

REPORT INFORMATION
  Report Type: Spontaneous
  Country: US (occurrence: US)
  Receive Date: 20130708
  Receipt Date: 20140110
  Transmission Date: 20141002
  Serious: Yes (Hospitalization)
  Sender: FDA-Public Use
  Company Number: US-B.I. PHARMACEUTICALS,INC./RIDGEFIELD-2013-BI-19395BP

PATIENT
  Age: 59 Year
  Sex: Female
  Weight: 97.98 kg

DRUGS (27)
  1. PRADAXA [Suspect]
     Indication: ANTICOAGULANT THERAPY
     Dosage: 300 MG
     Dates: start: 20120217, end: 20121007
  2. MORPHINE SULFATE CR [Concomitant]
     Dates: start: 2011, end: 2013
  3. METOPROLOL TARTRATE [Concomitant]
     Dosage: 50 MG
     Route: 048
     Dates: start: 2011, end: 2013
  4. TRIAMTERENE HCTZ [Concomitant]
     Dates: start: 2011, end: 2013
  5. PREDNISONE [Concomitant]
     Route: 048
     Dates: start: 2011, end: 2013
  6. PRISTIQ [Concomitant]
     Dosage: 100 MG
     Route: 048
  7. FLECAINIDE ACETATE [Concomitant]
     Route: 048
  8. BUPROPION [Concomitant]
  9. METRONIDAZOLE [Concomitant]
  10. HYDROCODONE [Concomitant]
     Route: 048
  11. CYCLOBENZAPRINE [Concomitant]
  12. HYDROMORPHONE [Concomitant]
  13. PROCHLORPERAZINE MALEATE [Concomitant]
     Dosage: 30 MG
     Route: 048
  14. GABAPENTIN [Concomitant]
     Dosage: 900 MG
     Route: 048
  15. ZOMETA [Concomitant]
     Route: 042
  16. ASA [Concomitant]
     Dosage: 81 MG
     Route: 048
  17. AVASTIN [Concomitant]
     Route: 042
  18. CHLORHEXIDINE GLUCONATE [Concomitant]
  19. CRESTOR [Concomitant]
     Dosage: 10 MG
     Route: 048
  20. GEMZAR [Concomitant]
     Route: 042
  21. LEVOTHYROXINE SODIUM [Concomitant]
     Dosage: 50 MCG
     Route: 048
  22. NASONEX [Concomitant]
  23. OXAPROZIN [Concomitant]
     Dosage: 1200 MCG
  24. POTASSIUM CHLORIDE [Concomitant]
     Dosage: 40 MEQ
  25. SENNA [Concomitant]
  26. VOLTAREN [Concomitant]
     Route: 062
  27. WELLBUTRIN [Concomitant]
     Dosage: 100 MG
     Route: 048

REACTIONS (2)
  - Gastrointestinal haemorrhage [Unknown]
  - Haemorrhagic anaemia [Unknown]
